FAERS Safety Report 9499228 (Version 1)
Quarter: 2013Q3

REPORT INFORMATION
  Report Type: Spontaneous
  Country: US (occurrence: US)
  Receive Date: 20130905
  Receipt Date: 20130905
  Transmission Date: 20140515
  Serious: No
  Sender: FDA-Public Use
  Company Number: US-BIOGENIDEC-2013BI081964

PATIENT
  Sex: Male

DRUGS (2)
  1. AVONEX [Suspect]
     Indication: MULTIPLE SCLEROSIS
     Route: 030
     Dates: start: 19980301
  2. COPAXONE [Concomitant]

REACTIONS (7)
  - Gait disturbance [Unknown]
  - Hypoaesthesia [Unknown]
  - Fear of injection [Unknown]
  - Alopecia [Unknown]
  - Pain in extremity [Unknown]
  - Drug ineffective [Unknown]
  - Feeling abnormal [Unknown]
